FAERS Safety Report 4975857-6 (Version None)
Quarter: 2006Q2

REPORT INFORMATION
  Report Type: 
  Country: None (occurrence: None)
  Receive Date: 20060411
  Receipt Date: 20060329
  Transmission Date: 20061013
  Serious: Yes (Death)
  Sender: FDA-Public Use
  Company Number: 2005-02493

PATIENT
  Age: 52 Year
  Sex: Male

DRUGS (6)
  1. VELCADE [Suspect]
     Indication: MULTIPLE MYELOMA
     Dosage: 1.75 MG, INTRAVENOUS
     Route: 042
     Dates: start: 20050624, end: 20050929
  2. NEUROBION (PYRIDOXINE HYDROCHLORIDE, THIAMINE HYDROCHLORIDE, CYANOOCOB [Concomitant]
  3. LEVOTHYROXINE SODIUM [Concomitant]
  4. PYRIDOXINE (PYRIDOXINE) [Concomitant]
  5. LOVASTATIN [Concomitant]
  6. TRAMADOL (TRAMADOL) TABLET [Concomitant]

REACTIONS (3)
  - CHEST PAIN [None]
  - DYSPNOEA [None]
  - SUDDEN DEATH [None]
